FAERS Safety Report 11400997 (Version 1)
Quarter: 2015Q3

REPORT INFORMATION
  Report Type: Spontaneous
  Country: BG (occurrence: BG)
  Receive Date: 20150820
  Receipt Date: 20150820
  Transmission Date: 20151125
  Serious: Yes (Hospitalization)
  Sender: FDA-Public Use
  Company Number: PHHY2015BG099752

PATIENT
  Age: 18 Year
  Sex: Female

DRUGS (2)
  1. DEGAN [Suspect]
     Active Substance: METOCLOPRAMIDE HYDROCHLORIDE
     Indication: VOMITING
     Dosage: 10 MG, QD
     Route: 030
  2. DEGAN [Suspect]
     Active Substance: METOCLOPRAMIDE HYDROCHLORIDE
     Indication: VOMITING
     Dosage: 10 MG, 5QD
     Route: 048
     Dates: start: 20150727, end: 20150728

REACTIONS (6)
  - Overdose [Recovered/Resolved]
  - Eye movement disorder [Recovered/Resolved]
  - Vertigo [Recovered/Resolved]
  - Extrapyramidal disorder [Recovered/Resolved]
  - Medication error [Recovered/Resolved]
  - Pain [Recovered/Resolved]

NARRATIVE: CASE EVENT DATE: 20150727
